FAERS Safety Report 5042702-2 (Version None)
Quarter: 2006Q2

REPORT INFORMATION
  Report Type: 
  Country: None (occurrence: None)
  Receive Date: 20060627
  Receipt Date: 20060609
  Transmission Date: 20061013
  Serious: Yes (Other)
  Sender: FDA-Public Use
  Company Number: DE200606002772

PATIENT
  Sex: Female

DRUGS (1)
  1. YENTREVE(DULOXETINE HYDROCHLORIDE) CAPSULE [Suspect]
     Dosage: ORAL
     Route: 048

REACTIONS (1)
  - VON WILLEBRAND'S DISEASE [None]
